FAERS Safety Report 25699743 (Version 2)
Quarter: 2025Q3

REPORT INFORMATION
  Report Type: Spontaneous
  Country: EU (occurrence: EU)
  Receive Date: 20250819
  Receipt Date: 20250902
  Transmission Date: 20251020
  Serious: Yes (Other)
  Sender: AUROBINDO
  Company Number: EU-ZENTIVA-2025-ZT-042498

PATIENT
  Age: 51 Year
  Sex: Female

DRUGS (6)
  1. SERTRALINE [Interacting]
     Active Substance: SERTRALINE HYDROCHLORIDE
     Indication: Depression
     Dosage: 100 MILLIGRAM, ONCE A DAY (100 MG, Q24H (100 MILLIGRAM, QD FILM-COATED TABLET ))
     Route: 065
  2. PREGABALIN [Suspect]
     Active Substance: PREGABALIN
     Indication: Neuralgia
     Dosage: 75 MILLIGRAM, TWO TIMES A DAY
     Route: 065
  3. CIPROFLOXACIN [Interacting]
     Active Substance: CIPROFLOXACIN
     Indication: Skin bacterial infection
     Dosage: 1000 MILLIGRAM, TWO TIMES A DAY (1000 MG, QD (500 MG, BID))
     Route: 065
  4. CIPROFLOXACIN [Interacting]
     Active Substance: CIPROFLOXACIN
     Indication: Skin infection
     Dosage: 1000 MILLIGRAM, ONCE A DAY (1000 MG, QD (500 MG 2 ?/24 H))
     Route: 065
  5. BUPRENORPHINE [Suspect]
     Active Substance: BUPRENORPHINE
     Indication: Neuralgia
     Dosage: 1 DOSAGE FORM, 3 TIMES A DAY(35 ? G/H (PATCH CHANGE EVERY 72 HOURS))
     Route: 062
  6. BUPRENORPHINE [Suspect]
     Active Substance: BUPRENORPHINE
     Dosage: 35 MICROGRAM, EVERY HOUR (35 UG, QH (TTS 35 UG/H (PATCH CHANGE EVERY 72 HOURS))
     Route: 065

REACTIONS (7)
  - Skin infection [Unknown]
  - Pruritus [Unknown]
  - Condition aggravated [Unknown]
  - Skin burning sensation [Unknown]
  - Drug interaction [Unknown]
  - Burning sensation [Unknown]
  - Pain [Unknown]
